FAERS Safety Report 15364120 (Version 3)
Quarter: 2019Q4

REPORT INFORMATION
  Report Type: Spontaneous
  Country: US (occurrence: US)
  Receive Date: 20180909
  Receipt Date: 20191227
  Transmission Date: 20200122
  Serious: Yes (Life-Threatening, Hospitalization)
  Sender: FDA-Public Use
  Company Number: US-JNJFOC-20180838676

PATIENT
  Age: 68 Year
  Sex: Male

DRUGS (1)
  1. XARELTO [Suspect]
     Active Substance: RIVAROXABAN
     Indication: PULMONARY EMBOLISM
     Route: 048
     Dates: start: 20140617, end: 20171029

REACTIONS (4)
  - Off label use [Unknown]
  - Cerebral haemorrhage [Recovering/Resolving]
  - Incorrect dose administered [Unknown]
  - Oesophagitis haemorrhagic [Unknown]

NARRATIVE: CASE EVENT DATE: 20171029
